FAERS Safety Report 17588452 (Version 2)
Quarter: 2020Q4

REPORT INFORMATION
  Report Type: Spontaneous
  Country: AU (occurrence: AU)
  Receive Date: 20200327
  Receipt Date: 20201202
  Transmission Date: 20210113
  Serious: Yes (Other)
  Sender: FDA-Public Use
  Company Number: AU-SUN PHARMACEUTICAL INDUSTRIES LTD-2020R1-241160

PATIENT
  Age: 3 Year
  Sex: Female
  Weight: 15.4 kg

DRUGS (1)
  1. PARACETAMOL [Suspect]
     Active Substance: ACETAMINOPHEN
     Indication: PRODUCT USED FOR UNKNOWN INDICATION
     Dosage: UNK (150 ML OF 24 MG/ML (240 MG/KG) )
     Route: 048

REACTIONS (2)
  - Accidental exposure to product [Unknown]
  - Hepatotoxicity [Unknown]
